FAERS Safety Report 12326953 (Version 2)
Quarter: 2016Q2

REPORT INFORMATION
  Report Type: Spontaneous
  Country: US (occurrence: US)
  Receive Date: 20160503
  Receipt Date: 20160531
  Transmission Date: 20160815
  Serious: No
  Sender: FDA-Public Use
  Company Number: US-PFIZER INC-2016232467

PATIENT
  Age: 79 Year
  Sex: Female

DRUGS (2)
  1. LETROZOLE. [Suspect]
     Active Substance: LETROZOLE
     Dosage: UNK
  2. IBRANCE [Suspect]
     Active Substance: PALBOCICLIB
     Dosage: 125 MG, UNK
     Dates: start: 20150422, end: 20160512

REACTIONS (2)
  - White blood cell count decreased [Unknown]
  - Tumour marker increased [Unknown]

NARRATIVE: CASE EVENT DATE: 201603
